FAERS Safety Report 18650124 (Version 1)
Quarter: 2020Q4

REPORT INFORMATION
  Report Type: Spontaneous
  Country: US (occurrence: US)
  Receive Date: 20201222
  Receipt Date: 20201222
  Transmission Date: 20210114
  Serious: Yes (Other)
  Sender: FDA-Public Use
  Company Number: NVSC2020US336832

PATIENT

DRUGS (2)
  1. METFORMIN [Suspect]
     Active Substance: METFORMIN HYDROCHLORIDE
     Indication: ENDOMETRIAL CANCER RECURRENT
     Dosage: 2000 MG, QD (IN 28 DAY CYCLE)
     Route: 048
  2. TEMSIROLIMUS. [Suspect]
     Active Substance: TEMSIROLIMUS
     Indication: ENDOMETRIAL CANCER RECURRENT
     Dosage: 25 MG, QW (IN 28 DAY CYCLE)
     Route: 042

REACTIONS (2)
  - Hypokalaemia [Unknown]
  - Product use in unapproved indication [Unknown]
